FAERS Safety Report 16269361 (Version 2)
Quarter: 2019Q2

REPORT INFORMATION
  Report Type: Spontaneous
  Country: FR (occurrence: FR)
  Receive Date: 20190503
  Receipt Date: 20190508
  Transmission Date: 20190711
  Serious: Yes (Other)
  Sender: FDA-Public Use
  Company Number: FR-ASTRAZENECA-2019SE66173

PATIENT
  Age: 975 Month
  Sex: Female

DRUGS (7)
  1. NATISPRAY [Concomitant]
     Active Substance: NITROGLYCERIN
     Indication: DYSPNOEA
     Dosage: 0,30 MG/DOSE AT 2 PUFFS
  2. ATORVASTATIN [Concomitant]
     Active Substance: ATORVASTATIN
     Dosage: 40 MG AT 1 TABLET IN THE EVENING
  3. BRILIQUE [Suspect]
     Active Substance: TICAGRELOR
     Indication: CORONARY ARTERY DISEASE
     Route: 048
  4. KARDEGIC [Concomitant]
     Active Substance: ASPIRIN DL-LYSINE
     Route: 065
  5. KARDEGIC [Concomitant]
     Active Substance: ASPIRIN DL-LYSINE
     Dosage: 160 MG
     Route: 065
  6. HYDROCHLOROTHIAZIDE/IRBESARTAN [Concomitant]
     Active Substance: HYDROCHLOROTHIAZIDE\IRBESARTAN
     Dosage: 150 MG/ 12,5 MG AT 1 TABLET DAILY
  7. BISOPROLOL [Concomitant]
     Active Substance: BISOPROLOL

REACTIONS (3)
  - Dyspnoea [Recovering/Resolving]
  - Hypotension [Not Recovered/Not Resolved]
  - Gait disturbance [Recovering/Resolving]

NARRATIVE: CASE EVENT DATE: 201904
